FAERS Safety Report 18578841 (Version 1)
Quarter: 2020Q4

REPORT INFORMATION
  Report Type: Spontaneous
  Country: IN (occurrence: US)
  Receive Date: 20201204
  Receipt Date: 20201204
  Transmission Date: 20210114
  Serious: Yes (Hospitalization, Other)
  Sender: FDA-Public Use
  Company Number: IN-AUROBINDO-AUR-APL-2020-059883

PATIENT
  Age: 60 Year
  Sex: Male

DRUGS (1)
  1. MELPHALAN. [Suspect]
     Active Substance: MELPHALAN
     Indication: CHEMOTHERAPY
     Dosage: 140 MILLIGRAM/SQ. METER
     Route: 042

REACTIONS (14)
  - Adrenal insufficiency [Unknown]
  - Lethargy [Unknown]
  - Pituitary apoplexy [Unknown]
  - Blindness [Recovered/Resolved]
  - Haemoglobin decreased [Not Recovered/Not Resolved]
  - Pyrexia [Unknown]
  - Pancytopenia [Recovering/Resolving]
  - Pituitary haemorrhage [Unknown]
  - Headache [Recovered/Resolved]
  - White blood cell count decreased [Not Recovered/Not Resolved]
  - Nausea [Unknown]
  - Vomiting [Unknown]
  - Thrombocytopenia [Not Recovered/Not Resolved]
  - Eye pain [Unknown]
